FAERS Safety Report 17099817 (Version 1)
Quarter: 2019Q4

REPORT INFORMATION
  Report Type: Report from Study
  Country: US (occurrence: US)
  Receive Date: 20191202
  Receipt Date: 20191202
  Transmission Date: 20200122
  Serious: No
  Sender: FDA-Public Use
  Company Number: US-DOVA PHARMACEUTICALS INC.-DOV-000364

PATIENT
  Sex: Female

DRUGS (2)
  1. DOPTELET [Suspect]
     Active Substance: AVATROMBOPAG MALEATE
     Indication: THROMBOCYTOPENIC PURPURA
     Dosage: 20 MG, QD
     Route: 048
  2. DOPTELET [Suspect]
     Active Substance: AVATROMBOPAG MALEATE
     Dosage: 20 MG, EVERY OTHER DAY
     Route: 048

REACTIONS (4)
  - Pyrexia [Unknown]
  - Pain in extremity [Not Recovered/Not Resolved]
  - Petechiae [Unknown]
  - Vasodilatation [Unknown]
